FAERS Safety Report 7519293-7 (Version None)
Quarter: 2011Q2

REPORT INFORMATION
  Report Type: 
  Country: None (occurrence: None)
  Receive Date: 20110602
  Receipt Date: 20110526
  Transmission Date: 20111010
  Serious: Yes (Other)
  Sender: FDA-Public Use
  Company Number: A0929281A

PATIENT
  Age: 71 Year
  Sex: Female
  Weight: 106.4 kg

DRUGS (15)
  1. GLIPIZIDE [Concomitant]
     Dosage: 2.5MG PER DAY
  2. FISH OIL [Concomitant]
     Dosage: 1000MG TWICE PER DAY
  3. ASCORBIC ACID [Concomitant]
     Dosage: 1000MG PER DAY
  4. PYRIDOXINE HCL [Concomitant]
     Dosage: 100MG PER DAY
  5. CALCIUM + VITAMIN D3 [Concomitant]
     Dosage: 500MG TWICE PER DAY
  6. RED YEAST RICE [Concomitant]
     Dosage: 600MG TWICE PER DAY
  7. ALLI [Suspect]
     Indication: WEIGHT LOSS DIET
     Route: 048
     Dates: start: 20100901, end: 20110501
  8. FOLIC ACID [Concomitant]
     Dosage: 800MG PER DAY
  9. VITAMIN B-12 [Concomitant]
     Dosage: 1000MG PER DAY
  10. RANITIDINE [Concomitant]
  11. ZYRTEC [Concomitant]
     Dosage: 10MG PER DAY
  12. LOSARTAN WITH HYDROCHLOROTHIAZIDE [Concomitant]
  13. ASPIRIN [Concomitant]
     Dosage: 325MG PER DAY
  14. CRESTOR [Concomitant]
     Dosage: 20MG PER DAY
  15. METOPROLOL TARTRATE [Concomitant]
     Dosage: 50MG TWICE PER DAY

REACTIONS (5)
  - HAEMATOCHEZIA [None]
  - FREQUENT BOWEL MOVEMENTS [None]
  - ABDOMINAL PAIN UPPER [None]
  - ABNORMAL FAECES [None]
  - IRRITABLE BOWEL SYNDROME [None]
